FAERS Safety Report 7919326-X (Version None)
Quarter: 2011Q4

REPORT INFORMATION
  Report Type: 
  Country: None (occurrence: None)
  Receive Date: 20111115
  Receipt Date: 20111115
  Transmission Date: 20120403
  Serious: No
  Sender: FDA-Public Use
  Company Number: None

PATIENT
  Sex: Female

DRUGS (1)
  1. COPAXONE [Suspect]
     Indication: MULTIPLE SCLEROSIS RELAPSE
     Dosage: 20MG SQ DAILY
     Route: 058
     Dates: start: 20100610

REACTIONS (3)
  - INJECTION SITE REACTION [None]
  - SKIN DISCOLOURATION [None]
  - INJECTION SITE PAIN [None]
